FAERS Safety Report 23381958 (Version 1)
Quarter: 2024Q1

REPORT INFORMATION
  Report Type: Spontaneous
  Country: US (occurrence: None)
  Receive Date: 20240108
  Receipt Date: 20240108
  Transmission Date: 20240410
  Serious: Yes (Hospitalization)
  Sender: FDA-Public Use
  Company Number: None

PATIENT
  Age: 65 Year
  Sex: Female

DRUGS (1)
  1. FASENRA [Suspect]
     Active Substance: BENRALIZUMAB
     Route: 058

REACTIONS (5)
  - Nonspecific reaction [None]
  - Body temperature increased [None]
  - Chills [None]
  - Inappropriate affect [None]
  - Gait disturbance [None]

NARRATIVE: CASE EVENT DATE: 20231205
